FAERS Safety Report 23287226 (Version 1)
Quarter: 2023Q4

REPORT INFORMATION
  Report Type: Spontaneous
  Country: US (occurrence: None)
  Receive Date: 20231212
  Receipt Date: 20231212
  Transmission Date: 20240109
  Serious: Yes (Death)
  Sender: FDA-Public Use
  Company Number: US-ROCHE-3472697

PATIENT
  Age: 68 Year
  Sex: Male

DRUGS (3)
  1. CELLCEPT [Suspect]
     Active Substance: MYCOPHENOLATE MOFETIL
     Indication: Immunomodulatory therapy
     Dosage: ON 09NOV2023, THE PATIENT RECEIVED THE LAST INFUSION.
     Route: 065
  2. KRYSTEXXA [Suspect]
     Active Substance: PEGLOTICASE
     Indication: Product used for unknown indication
     Route: 042
     Dates: start: 20220720
  3. KRYSTEXXA [Suspect]
     Active Substance: PEGLOTICASE
     Dosage: 24TH INFUSION,
     Route: 042
     Dates: start: 20231109

REACTIONS (2)
  - Cardiac death [Fatal]
  - Off label use [Unknown]
